FAERS Safety Report 4809317-X (Version None)
Quarter: 2005Q4

REPORT INFORMATION
  Report Type: 
  Country: None (occurrence: None)
  Receive Date: 20051021
  Receipt Date: 20051014
  Transmission Date: 20060501
  Serious: No
  Sender: FDA-Public Use
  Company Number: DE_040613808

PATIENT
  Age: 33 Year
  Sex: Male

DRUGS (4)
  1. ZYPREXA [Suspect]
     Indication: SCHIZOAFFECTIVE DISORDER
     Dosage: 15 MG DAY  A FEW MONTHS
  2. SOLIAN(AMISULPRIDE) [Concomitant]
  3. LITHIUM [Concomitant]
  4. AKINETON [Concomitant]

REACTIONS (2)
  - AKATHISIA [None]
  - EOSINOPHILIA [None]
